FAERS Safety Report 13900618 (Version 1)
Quarter: 2017Q3

REPORT INFORMATION
  Report Type: Spontaneous
  Country: US (occurrence: None)
  Receive Date: 20170818
  Receipt Date: 20170818
  Transmission Date: 20171127
  Serious: Yes (Hospitalization)
  Sender: FDA-Public Use
  Company Number: None

PATIENT
  Age: 64 Year
  Sex: Female

DRUGS (11)
  1. OXYCODONE [Concomitant]
     Active Substance: OXYCODONE
  2. LYRICA [Concomitant]
     Active Substance: PREGABALIN
  3. IBRANCE [Suspect]
     Active Substance: PALBOCICLIB
     Indication: NEOPLASM MALIGNANT
     Route: 048
     Dates: start: 20170629
  4. AROMASIN [Concomitant]
     Active Substance: EXEMESTANE
  5. FENTANYL. [Concomitant]
     Active Substance: FENTANYL
  6. TOPROL XL [Concomitant]
     Active Substance: METOPROLOL SUCCINATE
  7. NORVASC [Concomitant]
     Active Substance: AMLODIPINE BESYLATE
  8. ZETIA [Concomitant]
     Active Substance: EZETIMIBE
  9. VALTREX [Concomitant]
     Active Substance: VALACYCLOVIR HYDROCHLORIDE
  10. CALCIUM [Concomitant]
     Active Substance: CALCIUM
  11. SENNA LAXATIVE [Concomitant]
     Active Substance: SENNOSIDES

REACTIONS (2)
  - Urinary tract infection [None]
  - Dyspepsia [None]

NARRATIVE: CASE EVENT DATE: 2017
